FAERS Safety Report 8101988-8 (Version None)
Quarter: 2012Q1

REPORT INFORMATION
  Report Type: 
  Country: None (occurrence: None)
  Receive Date: 20120131
  Receipt Date: 20120118
  Transmission Date: 20120608
  Serious: Yes (Other)
  Sender: FDA-Public Use
  Company Number: US-ELI_LILLY_AND_COMPANY-US201110001694

PATIENT
  Sex: Male
  Weight: 62.5 kg

DRUGS (26)
  1. TYLENOL PM [Concomitant]
     Dosage: UNK, QD
  2. MARCAINE [Concomitant]
     Dosage: 1 ML, UNK
  3. CITALOPRAM [Concomitant]
     Dosage: 20 UG, QD
  4. ENTOCORT EC [Concomitant]
     Dosage: 6 MG, QD
  5. BUSPIRONE HCL [Concomitant]
  6. NIASPAN [Concomitant]
  7. AMBIEN [Concomitant]
  8. IBUPROFEN [Concomitant]
  9. LOMOTIL [Concomitant]
  10. KENALOG [Concomitant]
  11. FORTEO [Suspect]
     Dosage: 20 UG, QD
     Route: 058
  12. ASCORBIC ACID [Concomitant]
     Dosage: UNK UNK, QD
  13. CARVEDILOL [Concomitant]
     Dosage: 6.25 MG, BID
  14. ACETAMINOPHEN AND HYDROCODONE BITARTRATE [Concomitant]
     Dosage: UNK, QD
  15. ASPIRIN [Concomitant]
     Dosage: 81 MG, QD
  16. VITAMIN TAB [Concomitant]
     Dosage: UNK, QD
  17. OMEPRAZOLE [Concomitant]
     Dosage: 20 MG, QD
  18. HYDROCODONE BITARTRATE [Concomitant]
     Dosage: 500 MG, PRN
  19. VITAMIN B-12 [Concomitant]
     Dosage: UNK, QD
  20. CALCIUM CITRATE [Concomitant]
     Dosage: 1300 MG, QD
  21. LACTATED RINGER'S [Concomitant]
     Dosage: 300 ML, UNK
  22. DIPHENOXYLATE [Concomitant]
     Indication: DIARRHOEA
     Dosage: UNK, PRN
  23. PRILOSEC [Concomitant]
     Dosage: 20 MG, QD
  24. VITAMIN D [Concomitant]
     Dosage: 4000 MG, QD
  25. FORTEO [Suspect]
     Indication: OSTEOPOROSIS
     Dosage: 20 UG, QD
     Route: 058
  26. LIDOCAINE [Concomitant]

REACTIONS (2)
  - SQUAMOUS CELL CARCINOMA OF SKIN [None]
  - ANAEMIA [None]
